FAERS Safety Report 24159849 (Version 1)
Quarter: 2024Q3

REPORT INFORMATION
  Report Type: Spontaneous
  Country: US (occurrence: US)
  Receive Date: 20240731
  Receipt Date: 20240731
  Transmission Date: 20241016
  Serious: No
  Sender: SANOFI AVENTIS
  Company Number: US-SA-SAC20240727000164

PATIENT
  Age: 37 Year
  Sex: Male
  Weight: 89.35 kg

DRUGS (5)
  1. DUPIXENT [Suspect]
     Active Substance: DUPILUMAB
     Indication: Eosinophilic oesophagitis
     Dosage: 300 MG, QW
     Route: 058
  2. FISH OIL [Concomitant]
     Active Substance: FISH OIL
  3. PAROXETINE HYDROCHLORIDE [Concomitant]
     Active Substance: PAROXETINE HYDROCHLORIDE\PAROXETINE HYDROCHLORIDE ANHYDROUS
  4. SERTRALINE HYDROCHLORIDE [Concomitant]
     Active Substance: SERTRALINE HYDROCHLORIDE
  5. CREATINE [Concomitant]
     Active Substance: CREATINE

REACTIONS (4)
  - Dysphagia [Unknown]
  - Choking sensation [Unknown]
  - Regurgitation [Unknown]
  - Injection site swelling [Recovered/Resolved]
